FAERS Safety Report 9004600 (Version 2)
Quarter: 2013Q1

REPORT INFORMATION
  Report Type: Spontaneous
  Country: US (occurrence: None)
  Receive Date: 20121226
  Receipt Date: 20130108
  Transmission Date: 20140127
  Serious: Yes (Death)
  Sender: FDA-Public Use
  Company Number: 2012-US-0155

PATIENT
  Age: 73 Year
  Sex: Male
  Weight: 63.96 kg

DRUGS (6)
  1. ABSTRAL [Suspect]
     Indication: BACK PAIN
     Route: 060
     Dates: start: 20120618, end: 20120703
  2. ABSTRAL [Suspect]
     Indication: BACK PAIN
     Route: 060
     Dates: start: 20120618, end: 20120703
  3. ABSTRAL [Suspect]
     Indication: BACK PAIN
     Dates: start: 20120720, end: 20120825
  4. ABSTRAL [Suspect]
     Indication: BACK PAIN
     Dates: start: 20120720, end: 20120825
  5. FENTANYL [Concomitant]
  6. LORTAB (DEANOL BISORCATE) [Concomitant]

REACTIONS (4)
  - Off label use [None]
  - Fall [None]
  - Back pain [None]
  - Metastases to bone [None]
